FAERS Safety Report 15668208 (Version 1)
Quarter: 2018Q4

REPORT INFORMATION
  Report Type: Spontaneous
  Country: MX (occurrence: MX)
  Receive Date: 20181129
  Receipt Date: 20181129
  Transmission Date: 20190205
  Serious: Yes (Hospitalization, Other)
  Sender: FDA-Public Use
  Company Number: MX-TOLMAR, INC.-TOLG20180659

PATIENT
  Age: 54 Year
  Sex: Female

DRUGS (3)
  1. DICLOXACILINE [Concomitant]
     Indication: TOOTH ABSCESS
     Dosage: UNKNOWN
     Route: 065
  2. CLINDAMYCIN. [Concomitant]
     Active Substance: CLINDAMYCIN
     Indication: TOOTH ABSCESS
     Dosage: UNKNOWN
     Route: 065
  3. ACYCLOVIR. [Suspect]
     Active Substance: ACYCLOVIR
     Indication: TOOTH ABSCESS
     Dosage: 400 MG
     Route: 048

REACTIONS (9)
  - Paraparesis [Recovered/Resolved]
  - Asthenia [Recovered/Resolved]
  - Nausea [Recovered/Resolved]
  - Acute kidney injury [Recovering/Resolving]
  - Vomiting [Recovered/Resolved]
  - Renal tubular necrosis [Recovering/Resolving]
  - Tubulointerstitial nephritis [Recovering/Resolving]
  - Hypokalaemia [Recovered/Resolved]
  - Hyporeflexia [Recovered/Resolved]
